FAERS Safety Report 5264861-9 (Version None)
Quarter: 2007Q1

REPORT INFORMATION
  Report Type: 
  Country: None (occurrence: None)
  Receive Date: 20061117
  Receipt Date: 20060113
  Transmission Date: 20070707
  Serious: Yes (Life-Threatening, Hospitalization, Disabling)
  Sender: FDA-Public Use
  Company Number: US-JNJFOC-20050804660

PATIENT
  Age: 80 Year
  Sex: Female
  Weight: 81.0124 kg

DRUGS (11)
  1. LEVAQUIN [Suspect]
     Indication: PNEUMONIA
     Dosage: 250 MG
     Dates: start: 20050228, end: 20050303
  2. ENOXAPARIN SODIUM [Suspect]
     Indication: DRUG USE FOR UNKNOWN INDICATION
     Dosage: 1 MG/KG
     Dates: start: 20050228, end: 20050307
  3. DIGOXIN [Suspect]
     Indication: DRUG USE FOR UNKNOWN INDICATION
     Dosage: 0.25 MG, IN 1 DAY
  4. ASPIRIN [Suspect]
     Indication: CORONARY ARTERY DISEASE
     Dosage: 325 MG, IN 1 DAY
  5. PLAVIX [Suspect]
     Indication: CORONARY ARTERY DISEASE
     Dosage: 75 MG, IN 1 DAY
     Dates: start: 20050301, end: 20050304
  6. TORSEMIDE [Suspect]
     Indication: DRUG USE FOR UNKNOWN INDICATION
     Dosage: 80 MG, IN 1 DAY
     Dates: start: 20050228, end: 20050304
  7. DIOVAN [Concomitant]
  8. FUROSEMIDE [Concomitant]
  9. AMLODIPINE BESYLATE [Concomitant]
  10. SALBUTAMOL (SALBUTAMOL) [Concomitant]
  11. IPRATROPIUM BROMIDE [Concomitant]

REACTIONS (3)
  - ANAEMIA [None]
  - MYOCARDIAL INFARCTION [None]
  - RENAL FAILURE ACUTE [None]
